FAERS Safety Report 9160065 (Version 1)
Quarter: 2013Q1

REPORT INFORMATION
  Report Type: Spontaneous
  Country: US (occurrence: None)
  Receive Date: 20130214
  Receipt Date: 20130214
  Transmission Date: 20140127
  Serious: Yes (Hospitalization, Other)
  Sender: FDA-Public Use
  Company Number: TPA2013A01241

PATIENT
  Age: 56 Year
  Sex: Male

DRUGS (2)
  1. DEXILANT (DEXLANSOPRAZOLE) [Suspect]
     Dates: start: 201004
  2. DEXILANT (DEXLANSOPRAZOLE) [Suspect]
     Dates: start: 201004

REACTIONS (6)
  - Clostridium difficile infection [None]
  - Dehydration [None]
  - Blood pressure decreased [None]
  - Colitis ulcerative [None]
  - Haemoglobin decreased [None]
  - Breath odour [None]
